FAERS Safety Report 20732944 (Version 4)
Quarter: 2022Q2

REPORT INFORMATION
  Report Type: Spontaneous
  Country: US (occurrence: US)
  Receive Date: 20220420
  Receipt Date: 20220623
  Transmission Date: 20220720
  Serious: No
  Sender: FDA-Public Use
  Company Number: US-EXELIXIS-CABO-22050167

PATIENT
  Age: 44 Year
  Sex: Female

DRUGS (3)
  1. NIVOLUMAB [Suspect]
     Active Substance: NIVOLUMAB
     Indication: Product used for unknown indication
     Route: 042
  2. CABOMETYX [Suspect]
     Active Substance: CABOZANTINIB S-MALATE
     Indication: Product used for unknown indication
     Dosage: 40 MG, QD
     Route: 048
     Dates: start: 20220221, end: 202203
  3. CABOMETYX [Suspect]
     Active Substance: CABOZANTINIB S-MALATE
     Dosage: 20 MG, QD
     Route: 048
     Dates: start: 20220415

REACTIONS (12)
  - Musculoskeletal discomfort [Unknown]
  - Rash erythematous [Unknown]
  - Fatigue [Unknown]
  - Skin fissures [Unknown]
  - Oral pain [Unknown]
  - Acne [Unknown]
  - Tenderness [Unknown]
  - Dry skin [Unknown]
  - Constipation [Unknown]
  - Blood pressure increased [Unknown]
  - Arthralgia [Unknown]
  - Erythema [Unknown]

NARRATIVE: CASE EVENT DATE: 20220315
